FAERS Safety Report 4514683-9 (Version None)
Quarter: 2004Q4

REPORT INFORMATION
  Report Type: 
  Country: None (occurrence: None)
  Receive Date: 20041126
  Receipt Date: 20041110
  Transmission Date: 20050328
  Serious: Yes (Other)
  Sender: FDA-Public Use
  Company Number: HQWYE638123NOV04

PATIENT
  Age: 25 Year
  Sex: Female

DRUGS (1)
  1. TRIFEME-28 (LEVONORGESTREL/ETHINYL ESTRADIOL/INERT, TABLET) [Suspect]
     Indication: CONTRACEPTION
     Dosage: 1 TABLET 1X PER 1 DAY ORAL
     Route: 048
     Dates: start: 19991101, end: 20040801

REACTIONS (2)
  - CONTACT LENS INTOLERANCE [None]
  - CORNEAL DISORDER [None]
